FAERS Safety Report 5723183-X (Version None)
Quarter: 2008Q2

REPORT INFORMATION
  Report Type: 
  Country: None (occurrence: None)
  Receive Date: 20080428
  Receipt Date: 20080414
  Transmission Date: 20081010
  Serious: Yes (Hospitalization)
  Sender: FDA-Public Use
  Company Number: 2008SP000489

PATIENT
  Age: 87 Year
  Sex: Female

DRUGS (9)
  1. XOPENEX [Suspect]
     Indication: CHRONIC OBSTRUCTIVE PULMONARY DISEASE
     Dosage: 1.25 MG/3ML;TID;INHALATION
     Route: 055
     Dates: start: 20080101, end: 20080302
  2. XOPENEX [Suspect]
     Indication: INFLUENZA
     Dosage: 1.25 MG/3ML;TID;INHALATION
     Route: 055
     Dates: start: 20080101, end: 20080302
  3. XOPENEX [Suspect]
     Indication: LUNG INFECTION
     Dosage: 1.25 MG/3ML;TID;INHALATION
     Route: 055
     Dates: start: 20080101, end: 20080302
  4. PREDNISONE TAB [Suspect]
     Dates: start: 20080301
  5. COZAAR [Concomitant]
  6. PROPRANOLOL [Concomitant]
  7. ALBUTEROL [Concomitant]
  8. TORSEMIDE [Concomitant]
  9. LUNESTA [Concomitant]

REACTIONS (14)
  - ABNORMAL BEHAVIOUR [None]
  - ANGINA PECTORIS [None]
  - BLOOD POTASSIUM DECREASED [None]
  - CHROMATURIA [None]
  - COUGH [None]
  - DRUG INEFFECTIVE [None]
  - FEELING ABNORMAL [None]
  - FLUID RETENTION [None]
  - OEDEMA PERIPHERAL [None]
  - PNEUMONIA [None]
  - SLUGGISHNESS [None]
  - SOMATOFORM DISORDER [None]
  - SUICIDAL IDEATION [None]
  - THIRST [None]
